FAERS Safety Report 4836442-X (Version None)
Quarter: 2005Q4

REPORT INFORMATION
  Report Type: 
  Country: None (occurrence: None)
  Receive Date: 20051118
  Receipt Date: 20051108
  Transmission Date: 20060501
  Serious: Yes (Other)
  Sender: FDA-Public Use
  Company Number: 2005123855

PATIENT
  Age: 81 Year
  Sex: Male
  Weight: 65 kg

DRUGS (4)
  1. LYRICA [Suspect]
     Indication: PERIPHERAL SENSORY NEUROPATHY
     Dosage: 200 MG (100 MG, 2 IN 1 D), ORAL
     Route: 048
     Dates: start: 20050617, end: 20050801
  2. ASPIRIN [Concomitant]
  3. BUPRENORPHINE (BUPRENORPHINE) [Concomitant]
  4. ACETAMINOPHEN W/ CODEINE [Concomitant]

REACTIONS (6)
  - BALANCE DISORDER [None]
  - CHROMATURIA [None]
  - FATIGUE [None]
  - JOINT SWELLING [None]
  - NEPHRITIS [None]
  - OEDEMA PERIPHERAL [None]
